FAERS Safety Report 8534597-7 (Version None)
Quarter: 2012Q3

REPORT INFORMATION
  Report Type: 
  Country: None (occurrence: None)
  Receive Date: 20120724
  Receipt Date: 20120718
  Transmission Date: 20120928
  Serious: Yes (Other)
  Sender: FDA-Public Use
  Company Number: PHHY2012BR062354

PATIENT
  Age: 17 Year
  Sex: Male

DRUGS (2)
  1. RITALIN LA [Suspect]
     Dosage: 40 MG, UNK
     Dates: start: 20050101
  2. RITALIN LA [Suspect]
     Indication: ATTENTION DEFICIT/HYPERACTIVITY DISORDER
     Dosage: 20 MG, UNK

REACTIONS (8)
  - DRUG INEFFECTIVE [None]
  - CEREBRAL HYPOPERFUSION [None]
  - ABDOMINAL PAIN UPPER [None]
  - ABNORMAL BEHAVIOUR [None]
  - DEPRESSED MOOD [None]
  - AGGRESSION [None]
  - ANXIETY [None]
  - DISTRACTIBILITY [None]
